FAERS Safety Report 4733266-9 (Version None)
Quarter: 2005Q3

REPORT INFORMATION
  Report Type: 
  Country: None (occurrence: None)
  Receive Date: 20050803
  Receipt Date: 20050722
  Transmission Date: 20060218
  Serious: Yes (Death, Hospitalization)
  Sender: FDA-Public Use
  Company Number: US-ROCHE-411870

PATIENT
  Age: 81 Year
  Sex: Male
  Weight: 66 kg

DRUGS (5)
  1. CAPECITABINE [Suspect]
     Dosage: GIVEN FROM DAYS ONE TO FOURTEEN OF A THREE WEEK CYCLE.
     Route: 048
     Dates: start: 20050627, end: 20050701
  2. BEVACIZUMAB [Suspect]
     Route: 042
     Dates: start: 20050627
  3. IRINOTECAN [Suspect]
     Route: 042
     Dates: start: 20050627
  4. ARANESP [Concomitant]
     Route: 030
     Dates: start: 20050627
  5. COLACE [Concomitant]
     Dates: start: 20050415

REACTIONS (8)
  - ABDOMINAL DISTENSION [None]
  - ASCITES [None]
  - ATELECTASIS [None]
  - DISEASE PROGRESSION [None]
  - ILEUS [None]
  - INTESTINAL PERFORATION [None]
  - LUNG INFILTRATION [None]
  - NAUSEA [None]
